FAERS Safety Report 16657295 (Version 1)
Quarter: 2019Q3

REPORT INFORMATION
  Report Type: Spontaneous
  Country: US (occurrence: US)
  Receive Date: 20190801
  Receipt Date: 20190801
  Transmission Date: 20191004
  Serious: No
  Sender: FDA-Public Use
  Company Number: US-SA-2019SA202821

PATIENT
  Sex: Male
  Weight: 69 kg

DRUGS (9)
  1. PLAVIX [Suspect]
     Active Substance: CLOPIDOGREL BISULFATE
     Indication: STENT PLACEMENT
     Dosage: 75 MG, QD
     Route: 048
     Dates: start: 20190707
  2. METOPROLOL. [Concomitant]
     Active Substance: METOPROLOL
  3. ISOSORBIDE. [Concomitant]
     Active Substance: ISOSORBIDE
  4. GLUCOSAMINE [Concomitant]
     Active Substance: GLUCOSAMINE
     Indication: ARTHRITIS
  5. LOSARTAN. [Concomitant]
     Active Substance: LOSARTAN
  6. METFORMIN [Concomitant]
     Active Substance: METFORMIN HYDROCHLORIDE
  7. FINASTERIDE. [Concomitant]
     Active Substance: FINASTERIDE
  8. ROSUVASTATIN. [Concomitant]
     Active Substance: ROSUVASTATIN
  9. VITAMINS NOS [Concomitant]
     Active Substance: VITAMINS

REACTIONS (1)
  - Condition aggravated [Unknown]
